FAERS Safety Report 9447980 (Version 6)
Quarter: 2014Q3

REPORT INFORMATION
  Report Type: Spontaneous
  Country: GB (occurrence: GB)
  Receive Date: 20130808
  Receipt Date: 20140709
  Transmission Date: 20150326
  Serious: Yes (Other)
  Sender: FDA-Public Use
  Company Number: PHFR2013GB004535

PATIENT
  Age: 60 Year
  Sex: Female

DRUGS (8)
  1. CLOZARIL [Suspect]
     Active Substance: CLOZAPINE
     Dosage: 200 MG
  2. BISACODYL. [Concomitant]
     Active Substance: BISACODYL
     Indication: GASTROINTESTINAL DISORDER
     Dosage: 5 MG, PRN
     Route: 048
  3. EPHEDRINE HCL [Concomitant]
     Indication: GENERAL PHYSICAL CONDITION ABNORMAL
     Dosage: 60 MG
     Route: 048
  4. TRIMETHOPRIM. [Concomitant]
     Active Substance: TRIMETHOPRIM
     Indication: GENERAL PHYSICAL CONDITION ABNORMAL
     Dosage: 100 MG
     Route: 048
  5. CLOZARIL [Suspect]
     Active Substance: CLOZAPINE
     Indication: SCHIZOPHRENIA
     Dosage: 200 MG, DAILY
     Route: 048
     Dates: start: 20010701
  6. AMISULPRIDE [Suspect]
     Active Substance: AMISULPRIDE
     Indication: SCHIZOPHRENIA
     Dosage: 400 MG, QD (DAILY)
     Route: 048
  7. TROSPIUM CHLORIDE. [Concomitant]
     Active Substance: TROSPIUM CHLORIDE
     Indication: GENERAL PHYSICAL CONDITION ABNORMAL
     Dosage: 40 MG
     Route: 048
  8. RANITIDINE [Concomitant]
     Active Substance: RANITIDINE\RANITIDINE HYDROCHLORIDE
     Indication: GASTROINTESTINAL DISORDER
     Dosage: 300 MG
     Route: 048

REACTIONS (5)
  - Internal hernia [Recovering/Resolving]
  - Autonomic neuropathy [Not Recovered/Not Resolved]
  - Abdominal pain upper [Recovering/Resolving]
  - Hiatus hernia [Not Recovered/Not Resolved]
  - Myalgia [Not Recovered/Not Resolved]

NARRATIVE: CASE EVENT DATE: 201306
